FAERS Safety Report 10658179 (Version 1)
Quarter: 2014Q4

REPORT INFORMATION
  Report Type: Spontaneous
  Country: US (occurrence: None)
  Receive Date: 20141205
  Receipt Date: 20141205
  Transmission Date: 20150529
  Serious: Yes (Other)
  Sender: FDA-Public Use
  Company Number: USA-2014105107

PATIENT
  Age: 61 Year
  Sex: Male
  Weight: 113.4 kg

DRUGS (20)
  1. ROCEPHIN [Concomitant]
     Active Substance: CEFTRIAXONE SODIUM
  2. CARVEDILOL. [Concomitant]
     Active Substance: CARVEDILOL
  3. NAPROXYN (UNKNOWN) [Concomitant]
  4. SEPTRA (SULFAMETHOXAZOLE, TRIMETHOPRIM) ? [Concomitant]
  5. CLONIDINE. [Concomitant]
     Active Substance: CLONIDINE
  6. POTASSIUM [Concomitant]
     Active Substance: POTASSIUM
  7. LYRICA [Concomitant]
     Active Substance: PREGABALIN
  8. POMALYST [Suspect]
     Active Substance: POMALIDOMIDE
     Indication: PLASMA CELL MYELOMA
     Dosage: 2 MG, 21 IN 21 D, PO
     Route: 048
     Dates: start: 20140128
  9. ENOXAPARIN [Concomitant]
     Active Substance: ENOXAPARIN
  10. CLOPIDOGREL [Concomitant]
     Active Substance: CLOPIDOGREL BISULFATE
  11. HYDROCODONE W/ACETEMINOPHEN (PARACETAMOL, HYDORCODONE) [Concomitant]
  12. AVENLOX (LEVOFLOXACIN) [Concomitant]
  13. HYDROCODONE [Concomitant]
     Active Substance: HYDROCODONE
  14. LASIX [Concomitant]
     Active Substance: FUROSEMIDE
  15. MITRIPTYLINE [Concomitant]
  16. VALACYCLOVIR (VALACICLOVIR HYDROCHLORIDE) [Concomitant]
  17. LIPITOR [Concomitant]
     Active Substance: ATORVASTATIN CALCIUM
  18. LEVOTHYROXINE [Concomitant]
     Active Substance: LEVOTHYROXINE
  19. OMEPRAZOLE. [Concomitant]
     Active Substance: OMEPRAZOLE
  20. TIZENIDINE (UNKNOWN) [Concomitant]

REACTIONS (3)
  - Muscle spasms [None]
  - Fatigue [None]
  - Orchitis [None]

NARRATIVE: CASE EVENT DATE: 201410
